FAERS Safety Report 19795815 (Version 1)
Quarter: 2021Q3

REPORT INFORMATION
  Report Type: Other
  Country: PT (occurrence: PT)
  Receive Date: 20210907
  Receipt Date: 20210907
  Transmission Date: 20211014
  Serious: Yes (Disabling, Other)
  Sender: FDA-Public Use
  Company Number: PT-ASPEN-GLO2021PT007108

PATIENT

DRUGS (2)
  1. MYOZYME [Concomitant]
     Active Substance: ALGLUCOSIDASE ALFA
     Indication: GLYCOGEN STORAGE DISEASE TYPE II
     Dosage: UNK UNK, Q15D
     Route: 065
     Dates: start: 2011
  2. DEXAMETHASONE. [Suspect]
     Active Substance: DEXAMETHASONE
     Indication: PRODUCT USED FOR UNKNOWN INDICATION
     Dosage: UNK
     Route: 065

REACTIONS (8)
  - Hypoxia [Unknown]
  - Loss of personal independence in daily activities [Unknown]
  - Heart rate abnormal [Unknown]
  - Muscular weakness [Unknown]
  - Chest pain [Unknown]
  - Pain [Unknown]
  - Abdominal distension [Unknown]
  - Abdominal pain [Unknown]
